FAERS Safety Report 4606535-0 (Version None)
Quarter: 2005Q2

REPORT INFORMATION
  Report Type: 
  Country: None (occurrence: None)
  Receive Date: 20050223
  Receipt Date: 20040916
  Transmission Date: 20051028
  Serious: Yes (Life-Threatening, Hospitalization, Disabling, Other)
  Sender: FDA-Public Use
  Company Number: WAES 0409USA01462

PATIENT
  Sex: Male

DRUGS (3)
  1. ZOCOR [Suspect]
     Dosage: 80 MG/DAILY/PO;  PO
     Route: 048
     Dates: end: 20040601
  2. ZOCOR [Suspect]
     Dosage: 80 MG/DAILY/PO;  PO
     Route: 048
     Dates: start: 20040601, end: 20040801
  3. LOPID [Concomitant]

REACTIONS (1)
  - RHABDOMYOLYSIS [None]
